FAERS Safety Report 4384867-1 (Version None)
Quarter: 2004Q2

REPORT INFORMATION
  Report Type: 
  Country: None (occurrence: None)
  Receive Date: 20040615
  Receipt Date: 20040601
  Transmission Date: 20050107
  Serious: Yes (Other)
  Sender: FDA-Public Use
  Company Number: 200410400BCA

PATIENT
  Age: 77 Year
  Sex: Male
  Weight: 68.0396 kg

DRUGS (5)
  1. GAMIMUNE N 10% [Suspect]
     Indication: NERVOUS SYSTEM DISORDER
     Dosage: 35 G, INTRAVENOUS
     Route: 042
     Dates: start: 20040517
  2. METOPROLOL TARTRATE [Concomitant]
  3. L-THYROXINE [Concomitant]
  4. NAPROXEN [Concomitant]
  5. ISOSORBIDE [Concomitant]

REACTIONS (3)
  - BLOOD PRESSURE DECREASED [None]
  - EYE ROLLING [None]
  - PALLOR [None]
